FAERS Safety Report 12827386 (Version 1)
Quarter: 2016Q4

REPORT INFORMATION
  Report Type: Report from Study
  Country: US (occurrence: US)
  Receive Date: 20161006
  Receipt Date: 20161006
  Transmission Date: 20170207
  Serious: No
  Sender: FDA-Public Use
  Company Number: US-009507513-1610USA001830

PATIENT
  Age: 47 Year
  Sex: Female

DRUGS (1)
  1. DECADRON [Suspect]
     Active Substance: DEXAMETHASONE

REACTIONS (5)
  - Condition aggravated [Unknown]
  - Central nervous system lesion [Unknown]
  - Balance disorder [Unknown]
  - Vision blurred [Unknown]
  - Diplopia [Unknown]
